FAERS Safety Report 15838217 (Version 1)
Quarter: 2019Q1

REPORT INFORMATION
  Report Type: Spontaneous
  Country: US (occurrence: US)
  Receive Date: 20190117
  Receipt Date: 20190117
  Transmission Date: 20190417
  Serious: Yes (Hospitalization)
  Sender: FDA-Public Use
  Company Number: US-JNJFOC-20190118368

PATIENT
  Age: 60 Year
  Sex: Female

DRUGS (1)
  1. INVOKANA [Suspect]
     Active Substance: CANAGLIFLOZIN
     Indication: TYPE 2 DIABETES MELLITUS
     Route: 048
     Dates: start: 20131021

REACTIONS (12)
  - Foot amputation [Unknown]
  - Diabetic foot [Unknown]
  - Necrosis [Unknown]
  - Sepsis [Unknown]
  - Localised infection [Unknown]
  - Toe amputation [Unknown]
  - Wound [Unknown]
  - Osteomyelitis [Unknown]
  - Impaired healing [Unknown]
  - Wound dehiscence [Unknown]
  - Cellulitis [Unknown]
  - Acute kidney injury [Unknown]

NARRATIVE: CASE EVENT DATE: 2013
